FAERS Safety Report 4556636-0 (Version None)
Quarter: 2005Q1

REPORT INFORMATION
  Report Type: 
  Country: None (occurrence: None)
  Receive Date: 20050120
  Receipt Date: 20050107
  Transmission Date: 20050727
  Serious: Yes (Life-Threatening, Other)
  Sender: FDA-Public Use
  Company Number: GB-JNJFOC-20041205790

PATIENT
  Sex: Male

DRUGS (1)
  1. REOPRO [Suspect]
     Indication: ANGIOPLASTY
     Route: 042

REACTIONS (3)
  - CARDIAC TAMPONADE [None]
  - HAEMORRHAGE [None]
  - HYPOTENSION [None]
